FAERS Safety Report 6988414 (Version 2)
Quarter: 2016Q1

REPORT INFORMATION
  Report Type: Spontaneous
  Country: JP (occurrence: JP)
  Receive Date: 20090428
  Receipt Date: 20160105
  Transmission Date: 20160526
  Serious: Yes (Hospitalization)
  Sender: FDA-Public Use
  Company Number: GXKR2009JP04800

PATIENT
  Age: 69 Year
  Sex: Female
  Weight: 43 kg

DRUGS (3)
  1. VALSARTAN. [Concomitant]
     Active Substance: VALSARTAN
     Indication: CEREBRAL INFARCTION
     Dosage: 80 MG, UNK
     Route: 048
  2. AMANTADINE HCL [Suspect]
     Active Substance: AMANTADINE HYDROCHLORIDE
     Indication: CEREBRAL INFARCTION
     Dosage: 100 MG, BID
     Route: 048
  3. TICLOPIDINE HYDROCHLORIDE. [Concomitant]
     Active Substance: TICLOPIDINE HYDROCHLORIDE
     Indication: CEREBRAL INFARCTION
     Dosage: 100 MG, UNK
     Route: 048

REACTIONS (15)
  - Bladder dilatation [Recovered/Resolved]
  - Haemodialysis [Recovered/Resolved]
  - Hydronephrosis [Recovered/Resolved]
  - Altered state of consciousness [Recovering/Resolving]
  - Hyperkalaemia [Recovered/Resolved]
  - Decreased appetite [Unknown]
  - Urinary retention [Recovered/Resolved]
  - Acute kidney injury [Recovered/Resolved]
  - Bladder catheterisation [Recovered/Resolved]
  - Seizure [Recovered/Resolved]
  - Tremor [Recovered/Resolved]
  - Toxicity to various agents [Recovering/Resolving]
  - Blood alkaline phosphatase increased [Unknown]
  - Blood lactate dehydrogenase increased [Unknown]
  - Blood glucose increased [Unknown]

NARRATIVE: CASE EVENT DATE: 20071026
